FAERS Safety Report 4514306-9 (Version None)
Quarter: 2004Q4

REPORT INFORMATION
  Report Type: 
  Country: None (occurrence: None)
  Receive Date: 20041126
  Receipt Date: 20041112
  Transmission Date: 20050328
  Serious: Yes (Other)
  Sender: FDA-Public Use
  Company Number: 2004IM000940

PATIENT
  Age: 65 Year
  Sex: Female
  Weight: 75.6 kg

DRUGS (6)
  1. INFERGEN [Suspect]
     Indication: HEPATITIS C
     Dosage: 9 UG; QD; SUBCUTANEOUS
     Route: 058
     Dates: start: 20041022
  2. RIBAVIRIN [Suspect]
     Indication: HEPATITIS C
  3. DIAZIDE [Concomitant]
  4. ASPIRIN [Concomitant]
  5. LISINOPRIL [Concomitant]
  6. NORVASC [Concomitant]

REACTIONS (2)
  - HAEMOLYTIC ANAEMIA [None]
  - HYPERURICAEMIA [None]
